FAERS Safety Report 13892244 (Version 2)
Quarter: 2017Q3

REPORT INFORMATION
  Report Type: Report from Study
  Country: JP (occurrence: JP)
  Receive Date: 20170822
  Receipt Date: 20170906
  Transmission Date: 20171127
  Serious: Yes (Hospitalization)
  Sender: FDA-Public Use
  Company Number: JP-EISAI MEDICAL RESEARCH-EC-2017-030424

PATIENT
  Age: 37 Year
  Sex: Male
  Weight: 71 kg

DRUGS (18)
  1. FYCOMPA [Suspect]
     Active Substance: PERAMPANEL
     Route: 048
     Dates: start: 20170331, end: 20170511
  2. PHENYTOIN. [Suspect]
     Active Substance: PHENYTOIN
     Route: 048
     Dates: start: 20170303, end: 20170309
  3. PHENYTOIN. [Suspect]
     Active Substance: PHENYTOIN
     Indication: PARTIAL SEIZURES
     Route: 048
     Dates: end: 20170302
  4. LAMOTRIGINE. [Concomitant]
     Active Substance: LAMOTRIGINE
  5. METOCLOPRAMIDE. [Concomitant]
     Active Substance: METOCLOPRAMIDE
  6. FYCOMPA [Suspect]
     Active Substance: PERAMPANEL
     Route: 048
     Dates: start: 20170512
  7. FOSPHENYTOIN [Concomitant]
     Active Substance: FOSPHENYTOIN\FOSPHENYTOIN SODIUM
  8. TOPIRAMATE. [Concomitant]
     Active Substance: TOPIRAMATE
  9. DIAZEPAM. [Concomitant]
     Active Substance: DIAZEPAM
  10. PHENYTOIN. [Suspect]
     Active Substance: PHENYTOIN
     Route: 048
     Dates: start: 20170310, end: 20170312
  11. PHENYTOIN. [Suspect]
     Active Substance: PHENYTOIN
     Route: 048
     Dates: start: 20170313, end: 20170427
  12. SODIUM VALPROATE [Concomitant]
     Active Substance: VALPROATE SODIUM
  13. BROTIZOLAM [Concomitant]
     Active Substance: BROTIZOLAM
  14. PHENYTOIN. [Suspect]
     Active Substance: PHENYTOIN
     Route: 048
     Dates: start: 20170428
  15. LOXOMARIN [Concomitant]
     Active Substance: LOXOPROFEN
  16. SENNOSIDE [Concomitant]
     Active Substance: SENNOSIDES
  17. FYCOMPA [Suspect]
     Active Substance: PERAMPANEL
     Indication: PARTIAL SEIZURES
     Route: 048
     Dates: start: 20170221, end: 20170309
  18. FYCOMPA [Suspect]
     Active Substance: PERAMPANEL
     Route: 048
     Dates: start: 20170310, end: 20170330

REACTIONS (1)
  - Status epilepticus [Recovering/Resolving]

NARRATIVE: CASE EVENT DATE: 20170313
